FAERS Safety Report 20144982 (Version 1)
Quarter: 2021Q4

REPORT INFORMATION
  Report Type: Spontaneous
  Country: SK (occurrence: SK)
  Receive Date: 20211203
  Receipt Date: 20211203
  Transmission Date: 20220303
  Serious: Yes (Hospitalization, Other)
  Sender: FDA-Public Use
  Company Number: SK-AMGEN-SVKSP2021187252

PATIENT
  Age: 75 Year
  Sex: Female

DRUGS (9)
  1. BEVACIZUMAB [Suspect]
     Active Substance: BEVACIZUMAB
     Indication: Metastases to lung
     Dosage: UNK
     Route: 065
  2. XGEVA [Suspect]
     Active Substance: DENOSUMAB
     Indication: Metastases to bone
     Dosage: UNK
     Route: 065
  3. PEGFILGRASTIM [Suspect]
     Active Substance: PEGFILGRASTIM
     Indication: Product used for unknown indication
     Dosage: UNK
     Route: 065
  4. CARBOPLATIN\GEMCITABINE [Concomitant]
     Active Substance: CARBOPLATIN\GEMCITABINE
     Indication: Breast cancer metastatic
     Dosage: UNK
  5. TAMOXIFEN [Concomitant]
     Active Substance: TAMOXIFEN
  6. PACLITAXEL [Concomitant]
     Active Substance: PACLITAXEL
     Dosage: UNK, QWK
  7. LETROZOLE [Concomitant]
     Active Substance: LETROZOLE
  8. FULVESTRANT [Concomitant]
     Active Substance: FULVESTRANT
  9. CYCLOPHOSPHAMIDE;DOCETAXEL;DOXORUBICIN [Concomitant]

REACTIONS (8)
  - Breast cancer metastatic [Unknown]
  - Metastases to lung [Unknown]
  - Metastases to bone [Unknown]
  - Metastases to pleura [Unknown]
  - Hydrothorax [Unknown]
  - Pancytopenia [Unknown]
  - Febrile neutropenia [Unknown]
  - Lymphadenopathy [Unknown]

NARRATIVE: CASE EVENT DATE: 20190101
